FAERS Safety Report 19922663 (Version 1)
Quarter: 2021Q4

REPORT INFORMATION
  Report Type: Spontaneous
  Country: KR (occurrence: KR)
  Receive Date: 20211006
  Receipt Date: 20211006
  Transmission Date: 20220303
  Serious: Yes (Other)
  Sender: FDA-Public Use
  Company Number: KR-VIIV HEALTHCARE ULC-KR2021APC204118

PATIENT
  Age: 50 Year
  Sex: Male
  Weight: 76.2 kg

DRUGS (28)
  1. KIVEXA [Suspect]
     Active Substance: ABACAVIR SULFATE\LAMIVUDINE
     Indication: Product used for unknown indication
     Dosage: UNK
     Route: 048
     Dates: start: 20130401
  2. PENICILLIN G BENZATHINE [Concomitant]
     Active Substance: PENICILLIN G BENZATHINE
     Indication: Syphilis
     Dosage: UNK
     Route: 030
     Dates: start: 20130523, end: 20130523
  3. PENICILLIN G BENZATHINE [Concomitant]
     Active Substance: PENICILLIN G BENZATHINE
     Dosage: UNK
     Route: 030
     Dates: start: 20130530, end: 20130530
  4. PENICILLIN G BENZATHINE [Concomitant]
     Active Substance: PENICILLIN G BENZATHINE
     Dosage: UNK
     Route: 030
     Dates: start: 20130605, end: 20130605
  5. PENICILLIN G BENZATHINE [Concomitant]
     Active Substance: PENICILLIN G BENZATHINE
     Dosage: UNK
     Route: 030
     Dates: start: 20130613, end: 20130613
  6. BUPIVACAINE [Concomitant]
     Active Substance: BUPIVACAINE
     Indication: Spondyloarthropathy
     Dosage: UNK
     Route: 042
     Dates: start: 20140409, end: 20140409
  7. DARUNAVIR [Concomitant]
     Active Substance: DARUNAVIR
     Indication: HIV infection
     Dosage: UNK
     Route: 048
     Dates: start: 20130401, end: 20130522
  8. DEXAMETHASONE [Concomitant]
     Active Substance: DEXAMETHASONE
     Indication: Spondyloarthropathy
     Dosage: UNK
     Dates: start: 20140331, end: 20140331
  9. DEXAMETHASONE [Concomitant]
     Active Substance: DEXAMETHASONE
     Dosage: UNK
     Dates: start: 20140403, end: 20140403
  10. DEXAMETHASONE [Concomitant]
     Active Substance: DEXAMETHASONE
     Dosage: UNK
     Dates: start: 20140409, end: 20140409
  11. DEXAMETHASONE [Concomitant]
     Active Substance: DEXAMETHASONE
     Dosage: UNK
     Dates: start: 20140416, end: 20140416
  12. FLUCONAZOLE [Concomitant]
     Active Substance: FLUCONAZOLE
     Indication: Tinea pedis
     Dosage: UNK
     Route: 048
     Dates: start: 20140422, end: 20140506
  13. HYALURONIDASE [Concomitant]
     Active Substance: HYALURONIDASE
     Indication: Spondyloarthropathy
     Dosage: UNK
     Route: 030
     Dates: start: 20140416, end: 20140416
  14. IOHEXOL [Concomitant]
     Active Substance: IOHEXOL
     Indication: Spondyloarthropathy
     Dosage: UNK
     Dates: start: 20140403, end: 20140403
  15. IOHEXOL [Concomitant]
     Active Substance: IOHEXOL
     Dosage: UNK
     Dates: start: 20140409, end: 20140409
  16. IOHEXOL [Concomitant]
     Active Substance: IOHEXOL
     Dosage: UNK
     Dates: start: 20140416, end: 20140416
  17. ISOCONAZOLE [Concomitant]
     Active Substance: ISOCONAZOLE
     Indication: Tinea pedis
     Dosage: UNK
     Route: 061
     Dates: start: 20140422, end: 20140506
  18. MELOXICAM [Concomitant]
     Active Substance: MELOXICAM
     Indication: Spondyloarthropathy
     Dosage: UNK
     Route: 048
     Dates: start: 20130523, end: 20130613
  19. MELOXICAM [Concomitant]
     Active Substance: MELOXICAM
     Indication: Upper respiratory tract infection
     Dosage: UNK
     Route: 048
     Dates: start: 20140324, end: 20140329
  20. MELOXICAM [Concomitant]
     Active Substance: MELOXICAM
     Dosage: UNK
     Route: 048
     Dates: start: 20140416
  21. MORNIFLUMATE [Concomitant]
     Active Substance: MORNIFLUMATE
     Indication: Spondyloarthropathy
     Dosage: UNK
     Route: 048
     Dates: start: 20140331, end: 20140428
  22. RITONAVIR [Concomitant]
     Active Substance: RITONAVIR
     Indication: HIV infection
     Dosage: UNK
     Route: 048
     Dates: start: 20130401, end: 20130522
  23. ROPIVACAINE. [Concomitant]
     Active Substance: ROPIVACAINE HYDROCHLORIDE
     Indication: Spondyloarthropathy
     Dosage: UNK
     Route: 042
     Dates: start: 20140331, end: 20140331
  24. ROPIVACAINE. [Concomitant]
     Active Substance: ROPIVACAINE HYDROCHLORIDE
     Dosage: UNK
     Route: 042
     Dates: start: 20140403, end: 20140403
  25. ROPIVACAINE. [Concomitant]
     Active Substance: ROPIVACAINE HYDROCHLORIDE
     Dosage: UNK
     Route: 042
     Dates: start: 20140409, end: 20140409
  26. ROPIVACAINE. [Concomitant]
     Active Substance: ROPIVACAINE HYDROCHLORIDE
     Dosage: UNK
     Route: 042
     Dates: start: 20140416, end: 20140416
  27. TAMSULOSIN [Concomitant]
     Active Substance: TAMSULOSIN
     Indication: Benign prostatic hyperplasia
     Dosage: UNK
     Route: 048
     Dates: start: 20140303
  28. ACETAMINOPHEN\TRAMADOL [Concomitant]
     Active Substance: ACETAMINOPHEN\TRAMADOL
     Indication: Spondyloarthropathy
     Dosage: UNK
     Route: 048
     Dates: start: 20140331, end: 20140428

REACTIONS (7)
  - Syphilis [Recovered/Resolved]
  - Fungal skin infection [Recovered/Resolved]
  - Rash [Recovered/Resolved]
  - Upper respiratory tract infection [Recovered/Resolved]
  - Immune system disorder [Recovered/Resolved]
  - Tinea pedis [Recovered/Resolved]
  - Pharyngitis [Recovered/Resolved]

NARRATIVE: CASE EVENT DATE: 20130523
